FAERS Safety Report 10559373 (Version 1)
Quarter: 2014Q4

REPORT INFORMATION
  Report Type: Spontaneous
  Country: US (occurrence: US)
  Receive Date: 20141103
  Receipt Date: 20141103
  Transmission Date: 20150529
  Serious: No
  Sender: FDA-Public Use
  Company Number: US-BIOGENIDEC-2014BI113074

PATIENT
  Sex: Female

DRUGS (1)
  1. TECFIDERA [Suspect]
     Active Substance: DIMETHYL FUMARATE
     Indication: MULTIPLE SCLEROSIS

REACTIONS (16)
  - Underdose [Unknown]
  - Muscle hypertrophy [Not Recovered/Not Resolved]
  - Diarrhoea [Recovered/Resolved]
  - Glassy eyes [Unknown]
  - Wound haemorrhage [Unknown]
  - Hypoaesthesia [Unknown]
  - Dizziness [Unknown]
  - Gait disturbance [Not Recovered/Not Resolved]
  - Muscle tightness [Not Recovered/Not Resolved]
  - Constipation [Not Recovered/Not Resolved]
  - Feeling drunk [Unknown]
  - Eye swelling [Unknown]
  - Feeling abnormal [Unknown]
  - Nail disorder [Not Recovered/Not Resolved]
  - Scratch [Unknown]
  - Fatigue [Unknown]
